FAERS Safety Report 23653839 (Version 1)
Quarter: 2024Q1

REPORT INFORMATION
  Report Type: Spontaneous
  Country: US (occurrence: None)
  Receive Date: 20240319
  Receipt Date: 20240319
  Transmission Date: 20240409
  Serious: No
  Sender: FDA-Public Use
  Company Number: None

PATIENT
  Age: 1 Month
  Sex: Male
  Weight: 4.05 kg

DRUGS (1)
  1. BEYFORTUS [Suspect]
     Active Substance: NIRSEVIMAB-ALIP
     Indication: Infant
     Dosage: FREQUENCY : ONCE;?
     Route: 030
     Dates: start: 20240311

REACTIONS (2)
  - Injection site rash [None]
  - Rash vesicular [None]

NARRATIVE: CASE EVENT DATE: 20240318
